FAERS Safety Report 5815737-7 (Version None)
Quarter: 2008Q3

REPORT INFORMATION
  Report Type: 
  Country: None (occurrence: None)
  Receive Date: 20080721
  Receipt Date: 20080201
  Transmission Date: 20090109
  Serious: No
  Sender: FDA-Public Use
  Company Number: US-KINGPHARMUSA00001-K200800159

PATIENT

DRUGS (3)
  1. BICILLIN L-A [Suspect]
     Indication: SECONDARY SYPHILIS
     Dosage: ^2.4,^ UNK
     Dates: start: 20080201, end: 20080201
  2. HYDROCHLOROTHIAZIDE [Concomitant]
  3. ATORVASTATIN CALCIUM [Concomitant]

REACTIONS (2)
  - INCORRECT DOSE ADMINISTERED [None]
  - NO ADVERSE EVENT [None]
